FAERS Safety Report 13888420 (Version 1)
Quarter: 2017Q3

REPORT INFORMATION
  Report Type: Spontaneous
  Country: IN (occurrence: IN)
  Receive Date: 20170821
  Receipt Date: 20170821
  Transmission Date: 20171127
  Serious: Yes (Other)
  Sender: FDA-Public Use
  Company Number: IN-ALLERGAN-1732881US

PATIENT
  Age: 51 Year
  Sex: Male
  Weight: 76 kg

DRUGS (1)
  1. GANFORT [Suspect]
     Active Substance: BIMATOPROST\TIMOLOL
     Indication: GLAUCOMA
     Dosage: UNK UNK, QHS
     Route: 047
     Dates: start: 20170713, end: 20170716

REACTIONS (4)
  - Eye irritation [Recovered/Resolved with Sequelae]
  - Hypersensitivity [Unknown]
  - Ocular hyperaemia [Recovered/Resolved with Sequelae]
  - Eye swelling [Recovered/Resolved with Sequelae]

NARRATIVE: CASE EVENT DATE: 20170716
